FAERS Safety Report 14472213 (Version 3)
Quarter: 2018Q1

REPORT INFORMATION
  Report Type: Report from Study
  Country: CA (occurrence: CA)
  Receive Date: 20180131
  Receipt Date: 20180219
  Transmission Date: 20180509
  Serious: No
  Sender: FDA-Public Use
  Company Number: CA-AMGEN-CANSL2018012081

PATIENT
  Age: 63 Year
  Sex: Female
  Weight: 56.2 kg

DRUGS (3)
  1. DEXAMETHASONE. [Suspect]
     Active Substance: DEXAMETHASONE
     Indication: PLASMA CELL MYELOMA
     Dosage: UNK
     Route: 065
  2. LENALIDOMIDE [Suspect]
     Active Substance: LENALIDOMIDE
     Indication: PLASMA CELL MYELOMA
     Dosage: UNK
     Route: 065
  3. KYPROLIS [Suspect]
     Active Substance: CARFILZOMIB
     Indication: PLASMA CELL MYELOMA
     Dosage: 41 MG, DAILY X 2 WEEKLY X 3, Q 4 WEEKS
     Route: 042
     Dates: start: 201710

REACTIONS (14)
  - Headache [Not Recovered/Not Resolved]
  - Depressed mood [Recovering/Resolving]
  - Administration site rash [Recovering/Resolving]
  - Nausea [Not Recovered/Not Resolved]
  - Rash [Recovered/Resolved with Sequelae]
  - Appetite disorder [Not Recovered/Not Resolved]
  - Dyspnoea [Recovered/Resolved]
  - Communication disorder [Not Recovered/Not Resolved]
  - Somnolence [Not Recovered/Not Resolved]
  - Pain [Not Recovered/Not Resolved]
  - Anxiety [Recovering/Resolving]
  - Rash papular [Recovering/Resolving]
  - Malaise [Recovering/Resolving]
  - Fatigue [Not Recovered/Not Resolved]

NARRATIVE: CASE EVENT DATE: 20180116
